FAERS Safety Report 5246796-0 (Version None)
Quarter: 2007Q1

REPORT INFORMATION
  Report Type: 
  Country: None (occurrence: None)
  Receive Date: 20070226
  Receipt Date: 20070213
  Transmission Date: 20070707
  Serious: Yes (Hospitalization, Other)
  Sender: FDA-Public Use
  Company Number: US-PFIZER INC-2007012319

PATIENT
  Sex: Female
  Weight: 90.7 kg

DRUGS (1)
  1. BEXTRA [Suspect]
     Indication: ARTHRITIS
     Dosage: TEXT:10MG AND 20MG

REACTIONS (2)
  - CEREBRAL INFARCTION [None]
  - MYOCARDIAL INFARCTION [None]
